FAERS Safety Report 10179195 (Version 1)
Quarter: 2014Q2

REPORT INFORMATION
  Report Type: Spontaneous
  Country: US (occurrence: None)
  Receive Date: 20140515
  Receipt Date: 20140515
  Transmission Date: 20141212
  Serious: Yes (Other)
  Sender: FDA-Public Use
  Company Number: AUR-APL-2014-05535

PATIENT
  Age: 53 Year
  Sex: Male

DRUGS (8)
  1. CEFTRIAXONE [Suspect]
     Indication: STAPHYLOCOCCAL BACTERAEMIA
     Dosage: 30 HBO2, AT 2.4 ATMOSPHERES
  2. CEFTRIAXONE [Suspect]
     Indication: SEPTIC SHOCK
     Dosage: 30 HBO2, AT 2.4 ATMOSPHERES
  3. OXYGEN [Suspect]
     Indication: PRODUCT USED FOR UNKNOWN INDICATION
     Dosage: 30 HBO2, AT 2.4 ATMOSPHERES ABSOLUTE (ATM ABS) FOR TWO 45-MINUTE SESSIONS
  4. LEVOFLOXACIN [Concomitant]
  5. METRONIDAZOLE [Concomitant]
  6. VANCOMYCIN [Concomitant]
  7. OXYCODONE [Concomitant]
  8. ALPRAZOLAM [Concomitant]

REACTIONS (2)
  - Tonic convulsion [None]
  - Lethargy [None]
